FAERS Safety Report 14172058 (Version 1)
Quarter: 2017Q4

REPORT INFORMATION
  Report Type: Report from Study
  Country: AU (occurrence: AU)
  Receive Date: 20171108
  Receipt Date: 20171108
  Transmission Date: 20180321
  Serious: Yes (Hospitalization)
  Sender: FDA-Public Use
  Company Number: AU-ROCHE-2004806

PATIENT
  Age: 69 Year
  Sex: Female
  Weight: 98 kg

DRUGS (2)
  1. ACTEMRA [Suspect]
     Active Substance: TOCILIZUMAB
     Indication: RHEUMATOID ARTHRITIS
     Dosage: 4/52
     Route: 042
     Dates: start: 20150312, end: 20160829
  2. PREDNISOLONE. [Concomitant]
     Active Substance: PREDNISOLONE
     Indication: RHEUMATOID ARTHRITIS
     Route: 048

REACTIONS (4)
  - Lung infection [Unknown]
  - Pneumonia [Recovered/Resolved]
  - Pulmonary cavitation [Recovered/Resolved]
  - Mucosal ulceration [Recovered/Resolved]

NARRATIVE: CASE EVENT DATE: 201609
